FAERS Safety Report 23376036 (Version 1)
Quarter: 2024Q1

REPORT INFORMATION
  Report Type: Spontaneous
  Country: US (occurrence: US)
  Receive Date: 20240108
  Receipt Date: 20240108
  Transmission Date: 20240410
  Serious: No
  Sender: FDA-Public Use
  Company Number: US-OPELLA-2024OHG000047

PATIENT
  Sex: Female

DRUGS (1)
  1. ASPERCREME WITH LIDOCAINE [Suspect]
     Active Substance: LIDOCAINE
     Route: 065

REACTIONS (2)
  - Rash [Unknown]
  - Skin burning sensation [Unknown]
